FAERS Safety Report 5247739-6 (Version None)
Quarter: 2007Q1

REPORT INFORMATION
  Report Type: 
  Country: None (occurrence: None)
  Receive Date: 20070227
  Receipt Date: 20070216
  Transmission Date: 20070707
  Serious: Yes (Other)
  Sender: FDA-Public Use
  Company Number: PHEH2007US02169

PATIENT

DRUGS (2)
  1. LAMISIL [Suspect]
     Indication: NAIL TINEA
     Dosage: 250 MG, UNK
     Route: 048
  2. LAMISIL [Suspect]
     Dosage: 1/2 TAB OF 250MG, UNK
     Route: 048

REACTIONS (3)
  - ABDOMINAL PAIN UPPER [None]
  - FAECES DISCOLOURED [None]
  - GASTROOESOPHAGEAL REFLUX DISEASE [None]
